FAERS Safety Report 8314912-X (Version None)
Quarter: 2012Q2

REPORT INFORMATION
  Report Type: 
  Country: None (occurrence: None)
  Receive Date: 20120426
  Receipt Date: 20120419
  Transmission Date: 20120825
  Serious: Yes (Hospitalization)
  Sender: FDA-Public Use
  Company Number: GB-JNJFOC-20120408875

PATIENT
  Sex: Male

DRUGS (4)
  1. STELARA [Suspect]
     Route: 058
     Dates: start: 20120412
  2. STELARA [Suspect]
     Route: 058
     Dates: start: 20110623
  3. STELARA [Suspect]
     Route: 058
     Dates: start: 20110720
  4. STELARA [Suspect]
     Indication: PSORIASIS
     Route: 058
     Dates: start: 20120106

REACTIONS (3)
  - PSORIASIS [None]
  - FEMORAL NECK FRACTURE [None]
  - HOSPITALISATION [None]
